FAERS Safety Report 13037851 (Version 1)
Quarter: 2016Q4

REPORT INFORMATION
  Report Type: Other
  Country: AE (occurrence: AE)
  Receive Date: 20161218
  Receipt Date: 20161218
  Transmission Date: 20170207
  Serious: Yes (Disabling, Other)
  Sender: FDA-Public Use
  Company Number: AE-DEXPHARM-20162359

PATIENT
  Age: 30 Year
  Sex: Male

DRUGS (6)
  1. DOMPERIDONE [Interacting]
     Active Substance: DOMPERIDONE
  2. CHLOROQUINE. [Interacting]
     Active Substance: CHLOROQUINE
  3. CHLORDIAZEPOXIDE/CLIDINIUM BROMIDE [Interacting]
     Active Substance: CHLORDIAZEPOXIDE\CLIDINIUM BROMIDE
  4. MEFLOQUINE [Interacting]
     Active Substance: MEFLOQUINE
  5. PRIMAQUINE [Interacting]
     Active Substance: PRIMAQUINE PHOSPHATE
  6. OMEPRAZOLE. [Suspect]
     Active Substance: OMEPRAZOLE

REACTIONS (2)
  - Chorioretinopathy [Recovered/Resolved]
  - Dizziness [Recovered/Resolved]
